FAERS Safety Report 21280858 (Version 2)
Quarter: 2022Q4

REPORT INFORMATION
  Report Type: Other
  Country: CN (occurrence: None)
  Receive Date: 20220901
  Receipt Date: 20221104
  Transmission Date: 20230112
  Serious: Yes (Other)
  Sender: FDA-Public Use
  Company Number: CN-ROCHE-3170411

PATIENT
  Age: 53 Year
  Sex: Female
  Weight: 58 kg

DRUGS (5)
  1. ATEZOLIZUMAB [Suspect]
     Active Substance: ATEZOLIZUMAB
     Indication: Triple negative breast cancer
     Dosage: DAY1, DAY15, TREATMENT ON: 31/JUL/2020
     Route: 041
     Dates: start: 20200509
  2. TAXOL [Concomitant]
     Active Substance: PACLITAXEL
     Dates: start: 20200506, end: 20210719
  3. CISPLATIN [Concomitant]
     Active Substance: CISPLATIN
     Dates: start: 20200506, end: 20210127
  4. PALONOSETRON [Concomitant]
     Active Substance: PALONOSETRON
     Route: 040
     Dates: start: 20200506, end: 20210719
  5. PROMETHAZINE [Concomitant]
     Active Substance: PROMETHAZINE HYDROCHLORIDE
     Route: 030
     Dates: start: 20200506, end: 20210719

REACTIONS (1)
  - Vitiligo [Not Recovered/Not Resolved]

NARRATIVE: CASE EVENT DATE: 20210701
